FAERS Safety Report 7764484 (Version 3)
Quarter: 2013Q2

REPORT INFORMATION
  Report Type: Report from Study
  Country: ES (occurrence: ES)
  Receive Date: 20110118
  Receipt Date: 20130424
  Transmission Date: 20140414
  Serious: Yes (Hospitalization)
  Sender: FDA-Public Use
  Company Number: ES-ELI_LILLY_AND_COMPANY-ES201101000487

PATIENT
  Age: 66 Year
  Sex: Male
  Weight: 77 kg

DRUGS (9)
  1. NECITUMUMAB (11F8) (LY3012211) [Suspect]
     Indication: NON-SMALL CELL LUNG CANCER
     Dosage: 800 MG, OTHER
     Route: 042
     Dates: start: 20101014
  2. GEMCITABINE HYDROCHLORIDE [Suspect]
     Indication: NON-SMALL CELL LUNG CANCER
     Dosage: 2348 MG, OTHER
     Route: 042
     Dates: start: 20101014
  3. CISPLATIN [Suspect]
     Indication: NON-SMALL CELL LUNG CANCER
     Dosage: 141 MG, OTHER
     Route: 042
     Dates: start: 20101014
  4. COAPROVEL [Concomitant]
  5. AVANDIA [Concomitant]
  6. ADIRO [Concomitant]
     Dosage: 100 MG, DAILY (1/D)
  7. JANUVIA [Concomitant]
  8. COLCHICINE [Concomitant]
  9. ATORVASTATIN [Concomitant]

REACTIONS (1)
  - Haemoptysis [Recovered/Resolved]
